FAERS Safety Report 9958666 (Version 1)
Quarter: 2014Q1

REPORT INFORMATION
  Report Type: Spontaneous
  Country: US (occurrence: US)
  Receive Date: 20140305
  Receipt Date: 20140305
  Transmission Date: 20141002
  Serious: Yes (Other)
  Sender: FDA-Public Use
  Company Number: US-ROCHE-1358528

PATIENT
  Sex: Male

DRUGS (1)
  1. TAMIFLU [Suspect]
     Indication: INFLUENZA
     Route: 065

REACTIONS (5)
  - Aggression [Unknown]
  - Self injurious behaviour [Unknown]
  - Nightmare [Unknown]
  - Delusion [Unknown]
  - Hallucination [Unknown]
